FAERS Safety Report 8930379 (Version 1)
Quarter: 2012Q4

REPORT INFORMATION
  Report Type: 
  Country: GB (occurrence: GB)
  Receive Date: 20121128
  Receipt Date: 20121128
  Transmission Date: 20130627
  Serious: Yes (Other)
  Sender: FDA-Public Use
  Company Number: GB-GLAXOSMITHKLINE-B0846463A

PATIENT
  Age: 71 Year
  Sex: Male
  Weight: 69.85 kg

DRUGS (11)
  1. AVAMYS [Suspect]
     Indication: EAR DISORDER
     Dosage: 1IUAX Per day
     Route: 045
     Dates: start: 20121012, end: 20121105
  2. ADALAT LA [Concomitant]
  3. ISMO [Concomitant]
  4. LACTULOSE [Concomitant]
  5. TRAMADOL [Concomitant]
  6. SIMVASTATIN [Concomitant]
  7. PREDNISOLONE [Concomitant]
  8. ADCAL-D3 [Concomitant]
  9. ALENDRONIC ACID [Concomitant]
  10. ASPIRIN [Concomitant]
  11. CO-DYDRAMOL [Concomitant]

REACTIONS (4)
  - Bronchospasm [Unknown]
  - Dyspnoea [Unknown]
  - Cough [Unknown]
  - Wheezing [Unknown]
